FAERS Safety Report 4862811-8 (Version None)
Quarter: 2005Q4

REPORT INFORMATION
  Report Type: 
  Country: None (occurrence: None)
  Receive Date: 20051219
  Receipt Date: 20051208
  Transmission Date: 20060501
  Serious: Yes (Disabling, Other)
  Sender: FDA-Public Use
  Company Number: 2005157734

PATIENT
  Age: 38 Year
  Sex: Female

DRUGS (17)
  1. ZOLOFT [Suspect]
     Indication: ILL-DEFINED DISORDER
     Dates: start: 20020101
  2. ATENOLOL [Concomitant]
  3. DIGOXIN [Concomitant]
  4. FUROSEMIDE [Concomitant]
  5. POTASSIUM (POTASSIUM) [Concomitant]
  6. PROTONIX [Concomitant]
  7. LEVOTHYROXINE SODIUM [Concomitant]
  8. TRILEPTAL [Concomitant]
  9. BUSPIRONE HCL [Concomitant]
  10. ADVAIR DISKUS 100/50 [Concomitant]
  11. ALLEGRA-D 12 HOUR [Concomitant]
  12. ALBUTEROL [Concomitant]
  13. CYCLOBENZAPRINE (CYCLOBENZAPRINE) [Concomitant]
  14. PRAVACHOL [Concomitant]
  15. SEROQUEL [Concomitant]
  16. TRILEPTAL [Concomitant]
  17. WARFARIN SODIUM [Concomitant]

REACTIONS (3)
  - CARDIAC DISORDER [None]
  - MARFAN'S SYNDROME [None]
  - MITRAL VALVE REPLACEMENT [None]
